FAERS Safety Report 9779849 (Version 1)
Quarter: 2013Q4

REPORT INFORMATION
  Report Type: Spontaneous
  Country: CA (occurrence: CA)
  Receive Date: 20131223
  Receipt Date: 20131223
  Transmission Date: 20140711
  Serious: Yes (Death, Other)
  Sender: FDA-Public Use
  Company Number: PHHY2013CA146902

PATIENT
  Age: 71 Year
  Sex: Male

DRUGS (5)
  1. BUDESONIDE [Suspect]
     Indication: ASTHMA
     Dosage: 400 UG, PER DAY
     Route: 055
  2. BUDESONIDE [Interacting]
     Dosage: 800 UG, PER DAY
     Route: 055
  3. BUDESONIDE [Interacting]
     Dosage: 400 UG, PER DAY
     Route: 055
  4. ITRACONAZOLE [Interacting]
     Indication: BRONCHOPULMONARY ASPERGILLOSIS
     Dosage: 400 MG, PER DAY
     Route: 048
     Dates: start: 2006
  5. FORMOTEROL [Concomitant]
     Indication: ASTHMA
     Route: 055

REACTIONS (23)
  - Myocardial infarction [Fatal]
  - Adrenal disorder [Unknown]
  - Cushing^s syndrome [Unknown]
  - Weight increased [Unknown]
  - Cushingoid [Unknown]
  - Contusion [Unknown]
  - Muscular weakness [Unknown]
  - Insomnia [Unknown]
  - Hypertension [Unknown]
  - Body mass index increased [Unknown]
  - Central obesity [Unknown]
  - Lipohypertrophy [Unknown]
  - Amyotrophy [Unknown]
  - Skin atrophy [Unknown]
  - Respiratory disorder [Unknown]
  - Osteonecrosis [Unknown]
  - Drug interaction [Unknown]
  - Increased appetite [Unknown]
  - Blood urea increased [Unknown]
  - Blood creatinine increased [Unknown]
  - Blood potassium decreased [Unknown]
  - Blood glucose decreased [Unknown]
  - White blood cell count increased [Unknown]
